FAERS Safety Report 11189070 (Version 3)
Quarter: 2015Q2

REPORT INFORMATION
  Report Type: Spontaneous
  Country: AU (occurrence: AU)
  Receive Date: 20150615
  Receipt Date: 20150630
  Transmission Date: 20150821
  Serious: Yes (Life-Threatening, Hospitalization, Other)
  Sender: FDA-Public Use
  Company Number: AU-JNJFOC-20150609212

PATIENT
  Age: 58 Year
  Sex: Female

DRUGS (6)
  1. OXAZEPAM. [Concomitant]
     Active Substance: OXAZEPAM
     Route: 065
  2. PARACETAMOL [Suspect]
     Active Substance: ACETAMINOPHEN
     Route: 065
  3. FLUCONAZOLE. [Interacting]
     Active Substance: FLUCONAZOLE
     Indication: PRODUCT USED FOR UNKNOWN INDICATION
     Route: 065
  4. PARACETAMOL [Suspect]
     Active Substance: ACETAMINOPHEN
     Indication: PRODUCT USED FOR UNKNOWN INDICATION
     Route: 065
  5. ALPRAZOLAM. [Interacting]
     Active Substance: ALPRAZOLAM
     Indication: PRODUCT USED FOR UNKNOWN INDICATION
     Dosage: 200 MG X 50
     Route: 065
  6. ETHANOL [Suspect]
     Active Substance: ALCOHOL
     Indication: PRODUCT USED FOR UNKNOWN INDICATION
     Route: 065

REACTIONS (9)
  - Blood creatine phosphokinase increased [Unknown]
  - Nerve injury [Unknown]
  - Hypoxia [Unknown]
  - Pneumonia aspiration [Unknown]
  - Intentional overdose [Unknown]
  - Drug interaction [Unknown]
  - Sedation [Unknown]
  - Depressed level of consciousness [Unknown]
  - Drug half-life increased [Unknown]
